FAERS Safety Report 7509150-4 (Version None)
Quarter: 2011Q2

REPORT INFORMATION
  Report Type: 
  Country: None (occurrence: None)
  Receive Date: 20110519
  Receipt Date: 20110510
  Transmission Date: 20111010
  Serious: Yes (Other)
  Sender: FDA-Public Use
  Company Number: LEO-2011-00186

PATIENT
  Age: 60 Year
  Sex: Female
  Weight: 60 kg

DRUGS (4)
  1. INNOHEP [Suspect]
     Indication: FEMUR FRACTURE
     Dosage: 1 DOSAGE FORMS (4500 IU 1 IN 1 D), SUBCUTANEOUS
     Route: 058
     Dates: start: 20101201, end: 20110201
  2. INNOHEP [Suspect]
     Indication: THROMBOSIS PROPHYLAXIS
     Dosage: 1 DOSAGE FORMS (4500 IU 1 IN 1 D), SUBCUTANEOUS
     Route: 058
     Dates: start: 20101201, end: 20110201
  3. ACETAMINOPHEN [Suspect]
     Indication: PAIN
     Dosage: 2 G/DAY AT MAXIMUM (2 IN 1 D), ORAL
     Route: 048
     Dates: start: 20101206
  4. COTAREG (HYDROCHLORIDE, VALSARTAN) [Concomitant]

REACTIONS (2)
  - ALANINE AMINOTRANSFERASE INCREASED [None]
  - GAMMA-GLUTAMYLTRANSFERASE INCREASED [None]
